FAERS Safety Report 25285402 (Version 1)
Quarter: 2025Q2

REPORT INFORMATION
  Report Type: Spontaneous
  Country: US (occurrence: US)
  Receive Date: 20250509
  Receipt Date: 20250509
  Transmission Date: 20250716
  Serious: Yes (Other)
  Sender: ROCHE
  Company Number: US-ROCHE-10000277369

PATIENT
  Sex: Female

DRUGS (4)
  1. XOLAIR [Suspect]
     Active Substance: OMALIZUMAB
     Indication: Urticaria
     Dosage: STRENGTH: 150 MG/ML
     Route: 058
     Dates: start: 20220323
  2. XOLAIR [Suspect]
     Active Substance: OMALIZUMAB
  3. MAGNESIUM [Concomitant]
     Active Substance: MAGNESIUM
  4. STELARA [Concomitant]
     Active Substance: USTEKINUMAB

REACTIONS (1)
  - Plasma cell myeloma [Unknown]
